FAERS Safety Report 7248925-6 (Version None)
Quarter: 2011Q1

REPORT INFORMATION
  Report Type: 
  Country: None (occurrence: None)
  Receive Date: 20110128
  Receipt Date: 20100713
  Transmission Date: 20110831
  Serious: Yes (Hospitalization)
  Sender: FDA-Public Use
  Company Number: US-BAYER-200936489NA

PATIENT
  Sex: Female
  Weight: 119 kg

DRUGS (4)
  1. YAZ [Suspect]
     Indication: OLIGOMENORRHOEA
     Dosage: UNK
  2. STELAZINE [Concomitant]
     Indication: SCHIZOAFFECTIVE DISORDER
  3. YASMIN [Suspect]
     Indication: PRODUCT USED FOR UNKNOWN INDICATION
     Dosage: UNK
  4. SEROQUEL [Concomitant]
     Indication: SCHIZOAFFECTIVE DISORDER

REACTIONS (6)
  - ABDOMINAL PAIN [None]
  - PULMONARY EMBOLISM [None]
  - NAUSEA [None]
  - VOMITING [None]
  - DEEP VEIN THROMBOSIS [None]
  - SINUS TACHYCARDIA [None]
